FAERS Safety Report 24120539 (Version 2)
Quarter: 2024Q3

REPORT INFORMATION
  Report Type: Spontaneous
  Country: DE (occurrence: DE)
  Receive Date: 20240722
  Receipt Date: 20240822
  Transmission Date: 20241017
  Serious: Yes (Other)
  Sender: SANDOZ
  Company Number: None

PATIENT
  Age: 71 Year
  Sex: Female
  Weight: 60 kg

DRUGS (3)
  1. ESTRADIOL [Suspect]
     Active Substance: ESTRADIOL
     Indication: Hormone replacement therapy
     Dosage: 50 TWO TIMES A WEEK
     Route: 065
  2. PROGESTERONE [Suspect]
     Active Substance: PROGESTERONE
     Indication: Hormone replacement therapy
     Dosage: UNK UNK, QD
     Route: 067
     Dates: start: 202405
  3. CHLORMADINONE [Concomitant]
     Active Substance: CHLORMADINONE
     Indication: Hormone replacement therapy
     Dosage: 12 DAYS
     Route: 065

REACTIONS (5)
  - Postmenopausal haemorrhage [Unknown]
  - Pollakiuria [Unknown]
  - Abdominal pain [Unknown]
  - Off label use [Unknown]
  - Therapeutic product effect decreased [Unknown]

NARRATIVE: CASE EVENT DATE: 20240101
